FAERS Safety Report 6312720-2 (Version None)
Quarter: 2009Q3

REPORT INFORMATION
  Report Type: 
  Country: None (occurrence: None)
  Receive Date: 20090814
  Receipt Date: 20090814
  Transmission Date: 20100115
  Serious: Yes (Other)
  Sender: FDA-Public Use
  Company Number: None

PATIENT
  Age: 32 Year
  Sex: Male

DRUGS (8)
  1. NORVIR [Suspect]
     Indication: ACQUIRED IMMUNODEFICIENCY SYNDROME
     Dosage: 100 MG PO QD
     Route: 048
     Dates: start: 20090727
  2. FLUOXETINE [Suspect]
     Indication: DEPRESSION
     Dosage: 20MG PO QAM
     Route: 048
     Dates: start: 20090624, end: 20090724
  3. REYATAZ [Concomitant]
  4. TRUVADA [Concomitant]
  5. AMBIEN CR [Concomitant]
  6. DRONABINOL [Concomitant]
  7. CRESTOR [Concomitant]
  8. HYDROCODONE BITARTRATE + ACETAMINOPHEN [Concomitant]

REACTIONS (1)
  - DYSKINESIA [None]
